FAERS Safety Report 19290776 (Version 3)
Quarter: 2021Q2

REPORT INFORMATION
  Report Type: Spontaneous
  Country: FR (occurrence: FR)
  Receive Date: 20210522
  Receipt Date: 20210613
  Transmission Date: 20210717
  Serious: No
  Sender: FDA-Public Use
  Company Number: FR-UCBSA-2021019554

PATIENT
  Age: 70 Year
  Sex: Female

DRUGS (2)
  1. NEUPRO [Suspect]
     Active Substance: ROTIGOTINE
     Dosage: 8 MILLIGRAM, ONCE DAILY (QD)
     Dates: start: 202104
  2. NEUPRO [Suspect]
     Active Substance: ROTIGOTINE
     Indication: PRODUCT USED FOR UNKNOWN INDICATION
     Dosage: 6 MILLIGRAM, ONCE DAILY (QD)
     Dates: end: 202104

REACTIONS (5)
  - Drug ineffective [Unknown]
  - Incorrect dose administered by device [Unknown]
  - Application site vesicles [Unknown]
  - Tremor [Unknown]
  - Device adhesion issue [Unknown]

NARRATIVE: CASE EVENT DATE: 202104
